FAERS Safety Report 18764827 (Version 2)
Quarter: 2021Q1

REPORT INFORMATION
  Report Type: Spontaneous
  Country: US (occurrence: US)
  Receive Date: 20210120
  Receipt Date: 20210129
  Transmission Date: 20210419
  Serious: Yes (Other)
  Sender: FDA-Public Use
  Company Number: US-ALLERGAN-2101819US

PATIENT
  Sex: Female

DRUGS (1)
  1. LATISSE [Suspect]
     Active Substance: BIMATOPROST
     Indication: PRODUCT USED FOR UNKNOWN INDICATION

REACTIONS (5)
  - Eyelid skin dryness [Unknown]
  - Inappropriate schedule of product administration [Unknown]
  - Swelling of eyelid [Unknown]
  - Eyelid exfoliation [Unknown]
  - Eyelid rash [Recovered/Resolved]

NARRATIVE: CASE EVENT DATE: 20210101
